FAERS Safety Report 5302113-9 (Version None)
Quarter: 2007Q2

REPORT INFORMATION
  Report Type: 
  Country: None (occurrence: None)
  Receive Date: 20070419
  Receipt Date: 20070412
  Transmission Date: 20071010
  Serious: Yes (Hospitalization)
  Sender: FDA-Public Use
  Company Number: FR-GLAXOSMITHKLINE-B0466420A

PATIENT
  Age: 52 Year
  Sex: Male

DRUGS (4)
  1. ZYBAN [Suspect]
     Dosage: 150MG TWICE PER DAY
     Route: 048
     Dates: end: 20070323
  2. ETHANOL [Suspect]
     Route: 048
     Dates: start: 20070323, end: 20070324
  3. ACETAMINOPHEN [Concomitant]
     Indication: HEADACHE
     Dosage: 1UNIT PER DAY
     Route: 048
  4. PHOLCODINE [Concomitant]
     Route: 065

REACTIONS (4)
  - DRUG INTERACTION [None]
  - GRAND MAL CONVULSION [None]
  - MALAISE [None]
  - MIOSIS [None]
